FAERS Safety Report 6143768-9 (Version None)
Quarter: 2009Q2

REPORT INFORMATION
  Report Type: 
  Country: None (occurrence: None)
  Receive Date: 20090403
  Receipt Date: 20090326
  Transmission Date: 20091009
  Serious: Yes (Other)
  Sender: FDA-Public Use
  Company Number: PHEH2009US02084

PATIENT
  Sex: Female

DRUGS (1)
  1. GENTEAL PM LUBRICANT EYE OINTMENT [Suspect]
     Dosage: UNK
     Dates: start: 20090201

REACTIONS (4)
  - BLINDNESS [None]
  - DRUG INEFFECTIVE [None]
  - DYSGEUSIA [None]
  - VISUAL IMPAIRMENT [None]
